FAERS Safety Report 5485275-2 (Version None)
Quarter: 2007Q4

REPORT INFORMATION
  Report Type: 
  Country: None (occurrence: None)
  Receive Date: 20071010
  Receipt Date: 20071010
  Transmission Date: 20080405
  Serious: Yes (Other)
  Sender: FDA-Public Use
  Company Number: None

PATIENT
  Age: 60 Year
  Sex: Male
  Weight: 59.1944 kg

DRUGS (1)
  1. TENOFOVIR 300MG TAB [Suspect]
     Indication: HIV INFECTION
     Dosage: 300MG DAILY PO
     Route: 048
     Dates: start: 20020815, end: 20070501

REACTIONS (7)
  - ARTHRALGIA [None]
  - BLOOD ALKALINE PHOSPHATASE INCREASED [None]
  - BLOOD PHOSPHORUS DECREASED [None]
  - BONE SCAN ABNORMAL [None]
  - GLUCOSE URINE PRESENT [None]
  - OSTEOPOROSIS [None]
  - PAIN IN EXTREMITY [None]
